FAERS Safety Report 11883854 (Version 1)
Quarter: 2016Q1

REPORT INFORMATION
  Report Type: Spontaneous
  Country: RU (occurrence: RU)
  Receive Date: 20160101
  Receipt Date: 20160101
  Transmission Date: 20160526
  Serious: Yes (Life-Threatening, Other)
  Sender: FDA-Public Use
  Company Number: RU-ASTRAZENECA-2015SF31276

PATIENT
  Age: 54 Year
  Sex: Male

DRUGS (5)
  1. AMPRILAN [Concomitant]
     Active Substance: RAMIPRIL
  2. THROMBO ASS [Concomitant]
     Active Substance: ASPIRIN
     Route: 048
  3. CONCOR [Concomitant]
     Active Substance: BISOPROLOL FUMARATE
     Route: 048
  4. ARTROSILENE [Concomitant]
     Active Substance: KETOPROFEN
  5. BRILINTA [Suspect]
     Active Substance: TICAGRELOR
     Route: 048
     Dates: start: 20150514

REACTIONS (1)
  - Gastroduodenal ulcer [Unknown]

NARRATIVE: CASE EVENT DATE: 201507
